FAERS Safety Report 4624827-6 (Version None)
Quarter: 2005Q2

REPORT INFORMATION
  Report Type: 
  Country: None (occurrence: None)
  Receive Date: 20050401
  Receipt Date: 20050322
  Transmission Date: 20051028
  Serious: Yes (Death)
  Sender: FDA-Public Use
  Company Number: JP-JNJFOC-20030806157

PATIENT
  Sex: Male

DRUGS (5)
  1. REMICADE [Suspect]
     Indication: CROHN'S DISEASE
     Route: 041
     Dates: start: 20030822
  2. MAP [Concomitant]
     Route: 042
  3. PC [Concomitant]
     Route: 050
  4. AMPHOTERICIN B [Concomitant]
     Route: 042
  5. CPFX [Concomitant]
     Route: 042

REACTIONS (6)
  - CONDITION AGGRAVATED [None]
  - CROHN'S DISEASE [None]
  - GASTRIC HAEMORRHAGE [None]
  - LOWER GASTROINTESTINAL HAEMORRHAGE [None]
  - OESOPHAGEAL ULCER [None]
  - SEPTIC SHOCK [None]
